FAERS Safety Report 11656268 (Version 1)
Quarter: 2015Q4

REPORT INFORMATION
  Report Type: Spontaneous
  Country: US (occurrence: US)
  Receive Date: 20151023
  Receipt Date: 20151023
  Transmission Date: 20160304
  Serious: Yes (Hospitalization, Other)
  Sender: FDA-Public Use
  Company Number: US-TEVA-603396USA

PATIENT
  Age: 68 Year
  Sex: Female

DRUGS (3)
  1. QNASL [Suspect]
     Active Substance: BECLOMETHASONE DIPROPIONATE
     Indication: HYPERSENSITIVITY
     Dates: start: 2014, end: 201502
  2. QNASL [Suspect]
     Active Substance: BECLOMETHASONE DIPROPIONATE
     Dates: start: 2015
  3. QVAR [Suspect]
     Active Substance: BECLOMETHASONE DIPROPIONATE
     Route: 065

REACTIONS (3)
  - Rhinalgia [Not Recovered/Not Resolved]
  - Abasia [Recovering/Resolving]
  - Respiratory disorder [Unknown]

NARRATIVE: CASE EVENT DATE: 201502
